FAERS Safety Report 21175761 (Version 2)
Quarter: 2022Q3

REPORT INFORMATION
  Report Type: Report from Study
  Country: MX (occurrence: MX)
  Receive Date: 20220805
  Receipt Date: 20220812
  Transmission Date: 20221027
  Serious: Yes (Death)
  Sender: FDA-Public Use
  Company Number: MX-NOVARTISPH-NVSC2022MX177018

PATIENT
  Age: 94 Year
  Sex: Female
  Weight: 48 kg

DRUGS (1)
  1. EXFORGE HCT [Suspect]
     Active Substance: AMLODIPINE BESYLATE\HYDROCHLOROTHIAZIDE\VALSARTAN
     Indication: Hypertension
     Dosage: 1 DOSAGE FORM, QD (10/320/25, BY MOUTH)
     Route: 048
     Dates: start: 2014

REACTIONS (3)
  - Diabetes mellitus inadequate control [Fatal]
  - Hypertension [Fatal]
  - Eating disorder [Fatal]

NARRATIVE: CASE EVENT DATE: 20191220
